FAERS Safety Report 4732274-1 (Version None)
Quarter: 2005Q3

REPORT INFORMATION
  Report Type: 
  Country: None (occurrence: None)
  Receive Date: 20050726
  Receipt Date: 20040618
  Transmission Date: 20060218
  Serious: Yes (Hospitalization)
  Sender: FDA-Public Use
  Company Number: 04FRA0158

PATIENT
  Age: 53 Year
  Sex: Male

DRUGS (8)
  1. AGGRASTAT [Suspect]
     Indication: ANGINA UNSTABLE
     Dosage: INJECTION
     Dates: start: 20040408, end: 20040408
  2. ENOXAPARIN SODIUM [Suspect]
     Indication: ANGINA UNSTABLE
     Dosage: INJECTION
     Dates: start: 20040408, end: 20040408
  3. ASPIRIN [Concomitant]
  4. CLOPIDOGREL BISULFATE [Concomitant]
  5. INDAPAMIDE [Concomitant]
  6. IRBESARTAN [Concomitant]
  7. METFORMIN PAMOATE [Concomitant]
  8. POTASSIUM CHLORATE [Concomitant]

REACTIONS (1)
  - THROMBOCYTOPENIA [None]
